FAERS Safety Report 10540085 (Version 1)
Quarter: 2014Q4

REPORT INFORMATION
  Report Type: Spontaneous
  Country: US (occurrence: None)
  Receive Date: 20141023
  Receipt Date: 20141023
  Transmission Date: 20150529
  Serious: No
  Sender: FDA-Public Use
  Company Number: None

PATIENT
  Age: 37 Year
  Sex: Female
  Weight: 58.97 kg

DRUGS (9)
  1. CAL/MAG [Concomitant]
  2. SAW PALMETTO [Concomitant]
     Active Substance: SAW PALMETTO
  3. PROBIOTIC [Concomitant]
     Active Substance: PROBIOTICS NOS
  4. FISH OIL [Concomitant]
     Active Substance: FISH OIL
  5. VIT. D, FOLIC ACID, VIT. B - COMPLEX [Concomitant]
     Active Substance: FOLIC ACID\VITAMINS
  6. MAGNESIUM CITRATE. [Concomitant]
     Active Substance: MAGNESIUM CITRATE
  7. CIPROFLOXIN [Suspect]
     Active Substance: CIPROFLOXACIN
     Indication: URINARY TRACT INFECTION
     Dosage: 250 MG, 1 TABLET, 2XDAT, BY MOUTH
     Route: 048
     Dates: start: 20121214, end: 20121219
  8. MULTI [Concomitant]
  9. EPO [Concomitant]
     Active Substance: ERYTHROPOIETIN

REACTIONS (5)
  - Vertigo [None]
  - Fatigue [None]
  - Night sweats [None]
  - Cystitis [None]
  - Dizziness [None]

NARRATIVE: CASE EVENT DATE: 20121214
